FAERS Safety Report 17709423 (Version 3)
Quarter: 2020Q2

REPORT INFORMATION
  Report Type: Spontaneous
  Country: JP (occurrence: JP)
  Receive Date: 20200427
  Receipt Date: 20200625
  Transmission Date: 20200714
  Serious: Yes (Death, Other)
  Sender: FDA-Public Use
  Company Number: JP-BRISTOL-MYERS SQUIBB COMPANY-BMS-2020-033397

PATIENT
  Age: 7 Decade
  Sex: Female

DRUGS (2)
  1. YERVOY [Suspect]
     Active Substance: IPILIMUMAB
     Indication: MALIGNANT MELANOMA
     Dosage: 3 MILLIGRAM/KILOGRAM, UNKNOWN
     Route: 041
     Dates: start: 20200406, end: 20200420
  2. OPDIVO [Suspect]
     Active Substance: NIVOLUMAB
     Indication: MALIGNANT MELANOMA
     Dosage: 80 MILLIGRAM, UNKNOWN
     Route: 041
     Dates: start: 20200406, end: 20200420

REACTIONS (3)
  - Myalgia [Unknown]
  - Cardiomyopathy [Fatal]
  - Ventricular tachycardia [Unknown]

NARRATIVE: CASE EVENT DATE: 20200419
